FAERS Safety Report 6725505-X (Version None)
Quarter: 2010Q2

REPORT INFORMATION
  Report Type: 
  Country: None (occurrence: None)
  Receive Date: 20100514
  Receipt Date: 20100505
  Transmission Date: 20101027
  Serious: Yes (Hospitalization)
  Sender: FDA-Public Use
  Company Number: PL-AMGEN-QUU410967

PATIENT
  Sex: Female
  Weight: 57 kg

DRUGS (3)
  1. ENBREL [Suspect]
     Indication: PSORIATIC ARTHROPATHY
     Route: 058
     Dates: start: 20100219, end: 20100401
  2. METHYLPREDNISOLONE 4MG TAB [Concomitant]
     Route: 048
     Dates: start: 20060101, end: 20100101
  3. METHYLPREDNISOLONE 4MG TAB [Concomitant]
     Route: 048
     Dates: start: 20100101

REACTIONS (2)
  - THYROID CANCER [None]
  - TREMOR [None]
